FAERS Safety Report 6680969-5 (Version None)
Quarter: 2010Q2

REPORT INFORMATION
  Report Type: 
  Country: None (occurrence: None)
  Receive Date: 20100413
  Receipt Date: 20100413
  Transmission Date: 20101027
  Serious: Yes (Other)
  Sender: FDA-Public Use
  Company Number: None

PATIENT
  Sex: Female
  Weight: 90.7194 kg

DRUGS (2)
  1. SYNTHROID [Suspect]
     Indication: HYPOTHYROIDISM
     Dosage: 1 TABLET ONCE A DAY PO
     Route: 048
     Dates: start: 20091123, end: 20100315
  2. LEVOTHYROXINE 25 MCG TABLET [Suspect]
     Indication: HYPOTHYROIDISM
     Dosage: 1 TABLET ONCE A DAY PO
     Route: 048
     Dates: start: 20100315, end: 20100410

REACTIONS (4)
  - BLISTER [None]
  - NO THERAPEUTIC RESPONSE [None]
  - PRURITUS [None]
  - RASH [None]
